FAERS Safety Report 16774557 (Version 1)
Quarter: 2019Q3

REPORT INFORMATION
  Report Type: Report from Study
  Country: None (occurrence: NL)
  Receive Date: 20190905
  Receipt Date: 20190905
  Transmission Date: 20191005
  Serious: Yes (Hospitalization)
  Sender: FDA-Public Use
  Company Number: NL-ABBVIE-19K-114-2862164-00

PATIENT
  Sex: Male

DRUGS (2)
  1. DUODOPA [Suspect]
     Active Substance: CARBIDOPA\LEVODOPA
     Indication: PARKINSON^S DISEASE
     Dosage: CONTINUOUS NIGHT DOSE 2.7
     Route: 050
     Dates: start: 20180321
  2. DUODOPA [Suspect]
     Active Substance: CARBIDOPA\LEVODOPA
     Dosage: CONTINUOUS DAY DOSE 5; CONTINUOUS NIGHT DOSE 2.8
     Route: 050

REACTIONS (4)
  - Hospitalisation [Unknown]
  - Adverse event [Unknown]
  - Iron deficiency [Not Recovered/Not Resolved]
  - Gait disturbance [Not Recovered/Not Resolved]
